FAERS Safety Report 24021484 (Version 1)
Quarter: 2024Q2

REPORT INFORMATION
  Report Type: Report from Study
  Country: US (occurrence: US)
  Receive Date: 20240627
  Receipt Date: 20240627
  Transmission Date: 20240715
  Serious: No
  Sender: FDA-Public Use
  Company Number: US-ROCHE-3497097

PATIENT
  Age: 82 Year
  Sex: Female
  Weight: 58.0 kg

DRUGS (9)
  1. VABYSMO [Suspect]
     Active Substance: FARICIMAB\FARICIMAB-SVOA
     Indication: Retinal neovascularisation
     Route: 065
  2. ZETIA [Concomitant]
     Active Substance: EZETIMIBE
  3. PROVENTIL [Concomitant]
     Active Substance: ALBUTEROL
  4. MINERALS\VITAMINS [Concomitant]
     Active Substance: MINERALS\VITAMINS
  5. POTASSIUM CHLORIDE [Concomitant]
     Active Substance: POTASSIUM CHLORIDE
  6. OMEPRAZOLE [Concomitant]
     Active Substance: DONEPEZIL HYDROCHLORIDE\OMEPRAZOLE\OMEPRAZOLE MAGNESIUM
  7. MELOXICAM [Concomitant]
     Active Substance: MELOXICAM
  8. LOSARTAN [Concomitant]
     Active Substance: LOSARTAN
  9. HYDROCHLOROTHIAZIDE [Concomitant]
     Active Substance: HYDROCHLOROTHIAZIDE

REACTIONS (2)
  - Off label use [Unknown]
  - No adverse event [Unknown]
